FAERS Safety Report 4376906-9 (Version None)
Quarter: 2004Q2

REPORT INFORMATION
  Report Type: 
  Country: None (occurrence: None)
  Receive Date: 20040608
  Receipt Date: 20040524
  Transmission Date: 20050107
  Serious: Yes (Other)
  Sender: FDA-Public Use
  Company Number: 2004215442GB

PATIENT
  Age: 59 Year
  Sex: 0

DRUGS (1)
  1. CAMPTOSAR [Suspect]
     Indication: COLON CANCER METASTATIC
     Dosage: 660 MG, CYCLIC, IV
     Route: 042
     Dates: start: 20040408, end: 20040408

REACTIONS (1)
  - AUTOIMMUNE THROMBOCYTOPENIA [None]
